FAERS Safety Report 11280213 (Version 1)
Quarter: 2015Q3

REPORT INFORMATION
  Report Type: Spontaneous
  Country: US (occurrence: US)
  Receive Date: 20150717
  Receipt Date: 20150717
  Transmission Date: 20151125
  Serious: Yes (Other)
  Sender: FDA-Public Use
  Company Number: US-JNJFOC-20130609823

PATIENT
  Age: 5 Year
  Sex: Female

DRUGS (13)
  1. PREDNISONE. [Suspect]
     Active Substance: PREDNISONE
     Indication: LANGERHANS^ CELL HISTIOCYTOSIS
     Route: 065
  2. MUSTARGEN [Suspect]
     Active Substance: MECHLORETHAMINE HYDROCHLORIDE
     Indication: LANGERHANS^ CELL HISTIOCYTOSIS
     Route: 061
  3. ETOPOSIDE. [Suspect]
     Active Substance: ETOPOSIDE
     Indication: LANGERHANS^ CELL HISTIOCYTOSIS
     Route: 065
  4. VINCRISTINE [Suspect]
     Active Substance: VINCRISTINE
     Indication: LANGERHANS^ CELL HISTIOCYTOSIS
     Route: 065
  5. CORTICOSTEROID (UNSPECIFIED) [Suspect]
     Active Substance: CORTICOSTEROID NOS
     Indication: LANGERHANS^ CELL HISTIOCYTOSIS
     Route: 026
  6. CORTICOSTEROID (UNSPECIFIED) [Suspect]
     Active Substance: CORTICOSTEROID NOS
     Indication: LANGERHANS^ CELL HISTIOCYTOSIS
     Route: 065
  7. CLADRIBINE. [Suspect]
     Active Substance: CLADRIBINE
     Indication: LANGERHANS^ CELL HISTIOCYTOSIS
     Dosage: 5 DAYS
     Route: 065
  8. CYTARABINE. [Suspect]
     Active Substance: CYTARABINE
     Indication: LANGERHANS^ CELL HISTIOCYTOSIS
     Route: 065
  9. VINBLASTINE [Suspect]
     Active Substance: VINBLASTINE
     Indication: LANGERHANS^ CELL HISTIOCYTOSIS
     Route: 065
  10. CYCLOPHOSPHAMIDE. [Suspect]
     Active Substance: CYCLOPHOSPHAMIDE
     Indication: LANGERHANS^ CELL HISTIOCYTOSIS
     Route: 065
  11. DAUNOMYCIN [Suspect]
     Active Substance: DAUNORUBICIN
     Indication: LANGERHANS^ CELL HISTIOCYTOSIS
     Route: 065
  12. METHOTREXATE [Suspect]
     Active Substance: METHOTREXATE
     Indication: LANGERHANS^ CELL HISTIOCYTOSIS
     Route: 065
  13. CORTICOSTEROID (UNSPECIFIED) [Suspect]
     Active Substance: CORTICOSTEROID NOS
     Indication: LANGERHANS^ CELL HISTIOCYTOSIS
     Route: 061

REACTIONS (2)
  - Langerhans^ cell histiocytosis [Recovered/Resolved]
  - Product use issue [Unknown]
